FAERS Safety Report 7763365-9 (Version None)
Quarter: 2011Q3

REPORT INFORMATION
  Report Type: 
  Country: None (occurrence: None)
  Receive Date: 20110920
  Receipt Date: 20110906
  Transmission Date: 20111222
  Serious: Yes (Other)
  Sender: FDA-Public Use
  Company Number: US-ENDO PHARMACEUTICALS INC.-OPER20110196

PATIENT
  Sex: Male
  Weight: 88.53 kg

DRUGS (3)
  1. OPANA ER [Suspect]
     Indication: BACK PAIN
     Route: 048
     Dates: start: 20110812
  2. MORPHINE SULFATE [Suspect]
     Dosage: 30 MG
     Route: 048
     Dates: start: 20110812
  3. MORPHINE SULFATE [Suspect]
     Indication: PAIN
     Route: 048
     Dates: start: 20060101, end: 20110101

REACTIONS (10)
  - DIZZINESS [None]
  - ARTHRALGIA [None]
  - ASTHENIA [None]
  - ABDOMINAL PAIN UPPER [None]
  - INAPPROPRIATE SCHEDULE OF DRUG ADMINISTRATION [None]
  - DIARRHOEA [None]
  - THERAPEUTIC RESPONSE DECREASED [None]
  - PAIN [None]
  - NAUSEA [None]
  - FATIGUE [None]
